FAERS Safety Report 17071927 (Version 2)
Quarter: 2019Q4

REPORT INFORMATION
  Report Type: Report from Study
  Country: US (occurrence: US)
  Receive Date: 20191125
  Receipt Date: 20191218
  Transmission Date: 20200122
  Serious: Yes (Hospitalization)
  Sender: FDA-Public Use
  Company Number: US-PFIZER INC-2019499346

PATIENT
  Age: 6 Year
  Sex: Male
  Weight: 25.3 kg

DRUGS (9)
  1. CYCLOPHOSPHAMIDE. [Suspect]
     Active Substance: CYCLOPHOSPHAMIDE
     Indication: LEUKAEMIA
     Dosage: 860 MG, ONCE AT INDICATED TIME POINTS
     Route: 042
     Dates: start: 20191014
  2. CYTARABINE. [Suspect]
     Active Substance: CYTARABINE
     Indication: LEUKAEMIA
     Dosage: 64 MG, DAILY AT INDICATED TIME POINTS
     Route: 042
     Dates: start: 20191014
  3. METHOTREXATE SODIUM. [Suspect]
     Active Substance: METHOTREXATE SODIUM
     Indication: LEUKAEMIA
     Dosage: 12 MG, ONCE AT INDICATED TIME POINTS
     Route: 037
     Dates: start: 20190909
  4. THIOGUANINE [Suspect]
     Active Substance: THIOGUANINE
     Indication: LEUKAEMIA
     Dosage: 60 MG TABLET, DAILY
     Route: 048
     Dates: start: 20191014
  5. VINCRISTINE SULFATE. [Suspect]
     Active Substance: VINCRISTINE SULFATE
     Indication: LEUKAEMIA
     Dosage: 1.3 MG, ONCE AT INDICATED TIME POINTS
     Route: 042
     Dates: start: 20190909
  6. PEGASPARGASE [Suspect]
     Active Substance: PEGASPARGASE
     Indication: LEUKAEMIA
     Dosage: 2100 IU, ONCE
     Route: 042
     Dates: start: 20190912
  7. DOXORUBICIN HCL [Suspect]
     Active Substance: DOXORUBICIN HYDROCHLORIDE
     Indication: LEUKAEMIA
     Dosage: 22 MG, AT INDICATED TIME POINTS
     Route: 042
     Dates: start: 20190916
  8. DEXAMETHASONE. [Suspect]
     Active Substance: DEXAMETHASONE
     Indication: LEUKAEMIA
     Dosage: 4 MG TABLET, 2X/DAY AT INDICATED TIME POINTS
     Route: 048
     Dates: start: 20190909
  9. INCB018424 [Suspect]
     Active Substance: RUXOLITINIB
     Indication: LEUKAEMIA
     Dosage: 45 MG TABLET, 2X/DAY
     Route: 048
     Dates: start: 20190909

REACTIONS (1)
  - Febrile neutropenia [Recovered/Resolved]

NARRATIVE: CASE EVENT DATE: 20191027
